FAERS Safety Report 12507941 (Version 4)
Quarter: 2016Q3

REPORT INFORMATION
  Report Type: Spontaneous
  Country: GB (occurrence: GB)
  Receive Date: 20160629
  Receipt Date: 20160926
  Transmission Date: 20161109
  Serious: Yes (Other)
  Sender: FDA-Public Use
  Company Number: GB-TEVA-670401ACC

PATIENT
  Age: 49 Year
  Sex: Male
  Weight: 83 kg

DRUGS (14)
  1. CANDESARTAN [Interacting]
     Active Substance: CANDESARTAN
     Route: 048
     Dates: start: 20160301, end: 20160328
  2. CANDESARTAN [Interacting]
     Active Substance: CANDESARTAN
     Route: 048
     Dates: start: 20160307
  3. CETRABEN EMOLLIENT CREAM [Concomitant]
     Indication: DRY SKIN
     Dosage: APPLY AS OFTEN AS NEEDED TO DRY OR ITCHY SKIN
     Dates: start: 20160428, end: 20160429
  4. MOMETASONE [Concomitant]
     Active Substance: MOMETASONE
     Dosage: 1 DOSAGE FORMS DAILY; APPLY TO  BADLY  AFFECTED AREAS DAILY
     Dates: start: 20160517
  5. METHOTREXATE. [Suspect]
     Active Substance: METHOTREXATE
     Indication: RHEUMATOID ARTHRITIS
     Dosage: INCREASE AS DIRECTED TO SEVEN TO BE TAKEN ONCE
     Dates: start: 20150521, end: 20160414
  6. ZAPAIN [Concomitant]
     Active Substance: ACETAMINOPHEN\CODEINE PHOSPHATE
     Dosage: FOUR TO SIX HOURLY WHEN REQUIR...
     Dates: start: 20160428, end: 20160429
  7. CANDESARTAN [Interacting]
     Active Substance: CANDESARTAN
     Route: 048
     Dates: start: 20160328, end: 201604
  8. MELOXICAM. [Concomitant]
     Active Substance: MELOXICAM
     Dosage: 7.5 MILLIGRAM DAILY; WITH FOOD
     Dates: start: 20150521
  9. CANDESARTAN [Interacting]
     Active Substance: CANDESARTAN
     Dosage: 8 MG
     Route: 048
     Dates: start: 20160301, end: 20160327
  10. PREDNISOLONE. [Concomitant]
     Active Substance: PREDNISOLONE
     Dosage: THREE DAILY TWO WEEKS THEN REDUCE BY 2.5 MG PER FORTNIGHT
     Dates: start: 20160608, end: 20160609
  11. SULFASALAZINE. [Concomitant]
     Active Substance: SULFASALAZINE
     Dosage: 1000 MILLIGRAM DAILY;
     Dates: start: 20150521
  12. FOLIC ACID. [Concomitant]
     Active Substance: FOLIC ACID
     Dosage: 5 MILLIGRAM DAILY; WHILST ON METHOTREXATE
     Dates: start: 20150521
  13. AMLODIPINE [Concomitant]
     Active Substance: AMLODIPINE BESYLATE
     Dosage: 10 MILLIGRAM DAILY;
     Dates: start: 20160107
  14. LANSOPRAZOLE. [Concomitant]
     Active Substance: LANSOPRAZOLE
     Dosage: 30 MILLIGRAM DAILY;
     Dates: start: 20150708

REACTIONS (3)
  - Alanine aminotransferase increased [Recovered/Resolved]
  - Drug interaction [Unknown]
  - Hepatotoxicity [Recovered/Resolved]

NARRATIVE: CASE EVENT DATE: 20160331
